FAERS Safety Report 17219670 (Version 3)
Quarter: 2020Q1

REPORT INFORMATION
  Report Type: Spontaneous
  Country: US (occurrence: US)
  Receive Date: 20191231
  Receipt Date: 20200330
  Transmission Date: 20200409
  Serious: Yes (Death, Hospitalization, Other)
  Sender: FDA-Public Use
  Company Number: US-BIOGEN-2019BI00820662

PATIENT
  Age: 12 Year
  Sex: Male

DRUGS (2)
  1. SPINRAZA [Suspect]
     Active Substance: NUSINERSEN
     Indication: SPINAL MUSCULAR ATROPHY
     Dosage: 1ST 3 LOADING DOSES Q14 DAYS; 4TH LOADING DOSE X1 AFTER 30 DAYS.
     Route: 037
     Dates: start: 20170914
  2. SPINRAZA [Suspect]
     Active Substance: NUSINERSEN
     Dosage: MAINTENANCE DOSES: 1 PER 4 MONTHS.
     Route: 037
     Dates: end: 20190830

REACTIONS (9)
  - Aspiration [Unknown]
  - Duodenal perforation [Unknown]
  - Lethargy [Unknown]
  - Somnolence [Unknown]
  - Pulmonary haemorrhage [Unknown]
  - Respiratory tract infection [Unknown]
  - Gastrointestinal haemorrhage [Fatal]
  - Abdominal pain [Unknown]
  - Brain hypoxia [Unknown]

NARRATIVE: CASE EVENT DATE: 201912
